FAERS Safety Report 24112937 (Version 1)
Quarter: 2024Q3

REPORT INFORMATION
  Report Type: Spontaneous
  Country: US (occurrence: US)
  Receive Date: 20240719
  Receipt Date: 20240719
  Transmission Date: 20241017
  Serious: No
  Sender: MERCK
  Company Number: US-009507513-2407USA009621

PATIENT
  Age: 58 Year
  Sex: Male

DRUGS (1)
  1. BRIDION [Suspect]
     Active Substance: SUGAMMADEX
     Dosage: 400 MG
     Route: 042
     Dates: start: 20240526

REACTIONS (2)
  - Heart rate decreased [Recovered/Resolved]
  - Body mass index abnormal [Unknown]

NARRATIVE: CASE EVENT DATE: 20240526
